FAERS Safety Report 18929302 (Version 3)
Quarter: 2021Q3

REPORT INFORMATION
  Report Type: Report from Study
  Country: US (occurrence: US)
  Receive Date: 20210223
  Receipt Date: 20210910
  Transmission Date: 20211014
  Serious: No
  Sender: FDA-Public Use
  Company Number: NVSC2021US036076

PATIENT
  Age: 29 Year
  Sex: Male

DRUGS (1)
  1. KESIMPTA [Suspect]
     Active Substance: OFATUMUMAB
     Indication: MULTIPLE SCLEROSIS
     Dosage: UNK, (20MG/4ML, SOLUTION)
     Route: 058
     Dates: start: 20210212, end: 20210212

REACTIONS (1)
  - Chills [Unknown]

NARRATIVE: CASE EVENT DATE: 20210212
